FAERS Safety Report 5013885-5 (Version None)
Quarter: 2006Q2

REPORT INFORMATION
  Report Type: 
  Country: None (occurrence: None)
  Receive Date: 20060526
  Receipt Date: 20060526
  Transmission Date: 20061013
  Serious: No
  Sender: FDA-Public Use
  Company Number: None

PATIENT
  Sex: Female
  Weight: 52.1637 kg

DRUGS (2)
  1. NUVARING [Suspect]
     Indication: CONTRACEPTION
     Dosage: .120/.150 MG PER DAY   CONTINUAL   VAG
     Route: 067
     Dates: start: 20060505, end: 20060524
  2. PRILOSEC OTC [Concomitant]

REACTIONS (5)
  - DEPRESSION [None]
  - FEELING ABNORMAL [None]
  - LOSS OF LIBIDO [None]
  - MOOD SWINGS [None]
  - VULVOVAGINAL DRYNESS [None]
